FAERS Safety Report 5677297-3 (Version None)
Quarter: 2008Q1

REPORT INFORMATION
  Report Type: 
  Country: None (occurrence: None)
  Receive Date: 20080324
  Receipt Date: 20080314
  Transmission Date: 20080703
  Serious: Yes (Other)
  Sender: FDA-Public Use
  Company Number: JP-BAYER-200810519BYL

PATIENT
  Age: 38 Year
  Sex: Female

DRUGS (13)
  1. BETAFERON [Suspect]
     Indication: RELAPSING-REMITTING MULTIPLE SCLEROSIS
     Dosage: TOTAL DAILY DOSE: 8 MIU
     Route: 058
     Dates: start: 20050518, end: 20070115
  2. BETAFERON [Suspect]
     Dosage: TOTAL DAILY DOSE: 4 MIU
     Route: 058
     Dates: start: 20070116
  3. MYONAL [Concomitant]
     Indication: RELAPSING-REMITTING MULTIPLE SCLEROSIS
     Route: 048
     Dates: start: 20050518, end: 20060308
  4. PARIET [Concomitant]
     Indication: GASTRIC ULCER
     Route: 048
     Dates: start: 20060104
  5. ALFAROL [Concomitant]
     Indication: OSTEOPOROSIS
     Route: 048
     Dates: start: 20060104
  6. RIVOTRIL [Concomitant]
     Indication: RELAPSING-REMITTING MULTIPLE SCLEROSIS
     Route: 048
     Dates: start: 20050715
  7. LIORESAL [Concomitant]
     Indication: RELAPSING-REMITTING MULTIPLE SCLEROSIS
     Route: 048
     Dates: start: 20060104
  8. DANTRIUM [Concomitant]
     Indication: RELAPSING-REMITTING MULTIPLE SCLEROSIS
     Route: 048
     Dates: start: 20060530
  9. TERNELIN [Concomitant]
     Indication: RELAPSING-REMITTING MULTIPLE SCLEROSIS
     Route: 048
     Dates: start: 20060518
  10. DEPAS [Concomitant]
     Indication: INSOMNIA
     Route: 048
     Dates: start: 20061114
  11. HALCION [Concomitant]
     Indication: INSOMNIA
     Route: 048
     Dates: start: 20061017, end: 20061114
  12. LOPEMIN [Concomitant]
     Indication: DIARRHOEA
     Route: 048
     Dates: start: 20061017
  13. MYSLEE [Concomitant]
     Indication: INSOMNIA
     Route: 048
     Dates: start: 20050819

REACTIONS (2)
  - ANAEMIA [None]
  - PANCYTOPENIA [None]
